FAERS Safety Report 9312903 (Version 2)
Quarter: 2013Q3

REPORT INFORMATION
  Report Type: Report from Study
  Country: JP (occurrence: JP)
  Receive Date: 20130528
  Receipt Date: 20130923
  Transmission Date: 20140515
  Serious: Yes (Hospitalization)
  Sender: FDA-Public Use
  Company Number: JP-ALEXION PHARMACEUTICALS INC.-A201301143

PATIENT
  Age: 55 Year
  Sex: Female

DRUGS (6)
  1. SOLIRIS [Suspect]
     Indication: PAROXYSMAL NOCTURNAL HAEMOGLOBINURIA
     Dosage: 900 MG, Q2W
  2. PREDONINE [Concomitant]
     Dosage: 2 MG, QD
     Dates: start: 20101202
  3. FERROMIA [Concomitant]
     Dosage: 50 MG, PRN
  4. FOLIAMIN [Concomitant]
     Dosage: 15 MG, UNK
  5. BEZATOL [Concomitant]
     Dosage: 400 MG, QD
     Dates: start: 1998
  6. CALONAL [Concomitant]
     Dosage: 400 MG, QD
     Dates: start: 20121227

REACTIONS (2)
  - Enteritis infectious [Recovered/Resolved]
  - Fatigue [Recovered/Resolved]
